FAERS Safety Report 21480771 (Version 2)
Quarter: 2022Q4

REPORT INFORMATION
  Report Type: Spontaneous
  Country: RU (occurrence: RU)
  Receive Date: 20221019
  Receipt Date: 20221101
  Transmission Date: 20230113
  Serious: Yes (Hospitalization, Other)
  Sender: FDA-Public Use
  Company Number: RU-SA-2022SA417984

PATIENT
  Age: 8 Year
  Sex: Male

DRUGS (1)
  1. DUPILUMAB [Suspect]
     Active Substance: DUPILUMAB
     Indication: Dermatitis atopic
     Dosage: 200 UNK, QOW
     Route: 058
     Dates: start: 202111

REACTIONS (6)
  - Bronchial obstruction [Unknown]
  - Condition aggravated [Unknown]
  - Enterobiasis [Recovered/Resolved]
  - Leukocytosis [Unknown]
  - Eosinophil count increased [Unknown]
  - Eosinophilia [Unknown]

NARRATIVE: CASE EVENT DATE: 20220801
